FAERS Safety Report 5935540-7 (Version None)
Quarter: 2008Q4

REPORT INFORMATION
  Report Type: 
  Country: None (occurrence: None)
  Receive Date: 20081030
  Receipt Date: 20081020
  Transmission Date: 20090506
  Serious: No
  Sender: FDA-Public Use
  Company Number: US-BAYER-200814121BCC

PATIENT
  Age: 17 Year
  Sex: Female
  Weight: 66 kg

DRUGS (2)
  1. ALEVE (CAPLET) [Suspect]
     Indication: HEADACHE
     Dates: start: 20081020
  2. MOTRIN [Suspect]
     Dates: start: 20081020

REACTIONS (1)
  - NO ADVERSE EVENT [None]
